FAERS Safety Report 7619837-0 (Version None)
Quarter: 2011Q3

REPORT INFORMATION
  Report Type: 
  Country: None (occurrence: None)
  Receive Date: 20110719
  Receipt Date: 20110714
  Transmission Date: 20111222
  Serious: Yes (Other)
  Sender: FDA-Public Use
  Company Number: SG-SANOFI-AVENTIS-2011SA044646

PATIENT
  Age: 38 Year
  Sex: Male

DRUGS (2)
  1. AMOXICILLIN [Suspect]
     Route: 065
  2. METRONIDAZOLE [Suspect]
     Route: 065

REACTIONS (2)
  - DRUG ERUPTION [None]
  - SKIN EROSION [None]
